FAERS Safety Report 11569537 (Version 2)
Quarter: 2015Q4

REPORT INFORMATION
  Report Type: Spontaneous
  Country: US (occurrence: None)
  Receive Date: 20150929
  Receipt Date: 20151002
  Transmission Date: 20160304
  Serious: Yes (Other)
  Sender: FDA-Public Use
  Company Number: ADR-2015-01576

PATIENT
  Age: 8 Year
  Sex: Female

DRUGS (1)
  1. BACLOFEN INTRATHECAL 2,000MCG/ML [Suspect]
     Active Substance: BACLOFEN
     Indication: MUSCLE SPASTICITY
     Dosage: 375MCG/DAY

REACTIONS (1)
  - Muscle spasticity [None]
